FAERS Safety Report 10035669 (Version 1)
Quarter: 2014Q1

REPORT INFORMATION
  Report Type: Spontaneous
  Country: GB (occurrence: None)
  Receive Date: 20140321
  Receipt Date: 20140321
  Transmission Date: 20141002
  Serious: No
  Sender: FDA-Public Use
  Company Number: AXC-2014-000181

PATIENT
  Sex: Male

DRUGS (1)
  1. NITROGLYCERIN  (NITROGLYCERIN) RECTAL OINTMENT [Suspect]
     Indication: PRODUCT USED FOR UNKNOWN INDICATION
     Dates: start: 2012

REACTIONS (1)
  - Loss of consciousness [None]
